FAERS Safety Report 14379012 (Version 1)
Quarter: 2018Q1

REPORT INFORMATION
  Report Type: Spontaneous
  Country: FR (occurrence: FR)
  Receive Date: 20180112
  Receipt Date: 20180112
  Transmission Date: 20180509
  Serious: Yes (Other)
  Sender: FDA-Public Use
  Company Number: FR-AUROBINDO-AUR-APL-2018-001378

PATIENT
  Age: 14 Year
  Sex: Female
  Weight: 34 kg

DRUGS (2)
  1. OLANZAPINE 5MG [Suspect]
     Active Substance: OLANZAPINE
     Indication: ANOREXIA NERVOSA
     Dosage: 5 MG 1 PER DAY
     Route: 048
  2. PAROXETINE 20MG [Suspect]
     Active Substance: PAROXETINE
     Indication: ANOREXIA NERVOSA
     Dosage: 20 MG 1 PER DAY
     Route: 048
     Dates: start: 20170701

REACTIONS (1)
  - Hepatocellular injury [Recovering/Resolving]

NARRATIVE: CASE EVENT DATE: 20171018
